FAERS Safety Report 4667388-8 (Version None)
Quarter: 2005Q2

REPORT INFORMATION
  Report Type: 
  Country: None (occurrence: None)
  Receive Date: 20050519
  Receipt Date: 20050519
  Transmission Date: 20051028
  Serious: Yes (Hospitalization)
  Sender: FDA-Public Use
  Company Number: None

PATIENT
  Age: 64 Year
  Sex: Male
  Weight: 79.9 kg

DRUGS (2)
  1. ETODOLAC [Suspect]
  2. ACETAMINOPHEN [Concomitant]

REACTIONS (6)
  - GASTROINTESTINAL DISORDER [None]
  - HEADACHE [None]
  - HYPERSENSITIVITY [None]
  - NAUSEA [None]
  - RASH [None]
  - VOMITING [None]
